FAERS Safety Report 5192446-1 (Version None)
Quarter: 2006Q4

REPORT INFORMATION
  Report Type: 
  Country: None (occurrence: None)
  Receive Date: 20061220
  Receipt Date: 20061207
  Transmission Date: 20070319
  Serious: Yes (Other)
  Sender: FDA-Public Use
  Company Number: 2006151490

PATIENT
  Age: 47 Year
  Sex: Female
  Weight: 52.1637 kg

DRUGS (1)
  1. DEPO-PROVERA [Suspect]
     Indication: CONTRACEPTION
     Dosage: (MOST RECENT INJECTION), INTRAMUSCULAR
     Route: 030
     Dates: start: 20061101, end: 20061101

REACTIONS (2)
  - DRUG INEFFECTIVE [None]
  - URTICARIA [None]
